FAERS Safety Report 9476100 (Version 2)
Quarter: 2013Q3

REPORT INFORMATION
  Report Type: Report from Study
  Country: BR (occurrence: BR)
  Receive Date: 20130826
  Receipt Date: 20130920
  Transmission Date: 20140515
  Serious: Yes (Other)
  Sender: FDA-Public Use
  Company Number: PHHY2013BR091088

PATIENT
  Age: 60 Year
  Sex: Female
  Weight: 68 kg

DRUGS (8)
  1. ACLASTA [Suspect]
     Indication: OSTEOPOROSIS
     Dosage: 5 MG, UNK
     Route: 042
  2. LINSEED OIL [Concomitant]
     Dosage: 1 G, DAILY
     Route: 048
     Dates: start: 2007
  3. OMEGA 3 [Concomitant]
     Dosage: 3 G, DAILY
     Route: 048
     Dates: start: 2012
  4. CHROMO-Z [Concomitant]
     Dosage: 100 UG, DAILY
     Route: 048
     Dates: start: 2012
  5. VITAMIIN C [Concomitant]
     Dosage: 500 MG, DAILY
     Route: 048
     Dates: start: 2012
  6. PANTOGAR [Concomitant]
     Indication: NAIL DISORDER
     Dosage: 4 DF, DAILY
     Route: 048
  7. PANTOGAR [Concomitant]
     Indication: ALOPECIA
  8. CALCIUM [Concomitant]
     Dosage: UNK UKN, UNK

REACTIONS (8)
  - Sciatica [Unknown]
  - Pain [Unknown]
  - Pain in extremity [Unknown]
  - Abasia [Recovered/Resolved]
  - Chondropathy [Unknown]
  - Arthralgia [Recovered/Resolved]
  - Inflammation [Not Recovered/Not Resolved]
  - Stress [Not Recovered/Not Resolved]
